FAERS Safety Report 13495656 (Version 2)
Quarter: 2018Q2

REPORT INFORMATION
  Report Type: Spontaneous
  Country: US (occurrence: US)
  Receive Date: 20170428
  Receipt Date: 20180427
  Transmission Date: 20180711
  Serious: No
  Sender: FDA-Public Use
  Company Number: US-WEST-WARD PHARMACEUTICALS CORP.-US-H14001-17-00721

PATIENT
  Age: 76 Year
  Sex: Female
  Weight: 63.5 kg

DRUGS (4)
  1. EXEMESTANE. [Suspect]
     Active Substance: EXEMESTANE
     Indication: INVASIVE DUCTAL BREAST CARCINOMA
     Route: 048
     Dates: start: 201611, end: 20170223
  2. UNSPECIFIED VITAMIN [Concomitant]
     Active Substance: VITAMINS
     Indication: RETINAL DISORDER
     Route: 065
  3. VITAMINE D [Concomitant]
     Indication: PROPHYLAXIS
     Route: 048
  4. CALCIUM [Concomitant]
     Active Substance: CALCIUM
     Indication: PROPHYLAXIS
     Route: 048

REACTIONS (2)
  - Infection [Unknown]
  - Diarrhoea [Recovered/Resolved]

NARRATIVE: CASE EVENT DATE: 201701
